FAERS Safety Report 12197583 (Version 1)
Quarter: 2016Q1

REPORT INFORMATION
  Report Type: Spontaneous
  Country: IT (occurrence: IT)
  Receive Date: 20160322
  Receipt Date: 20160322
  Transmission Date: 20160526
  Serious: Yes (Other)
  Sender: FDA-Public Use
  Company Number: IT-ACCORD-038890

PATIENT
  Age: 53 Year
  Sex: Female
  Weight: 54 kg

DRUGS (7)
  1. CARBOPLATIN PFIZER [Suspect]
     Active Substance: CARBOPLATIN
     Indication: OVARIAN CANCER
     Dosage: STRENGTH: 50 MG/5 ML
     Route: 042
     Dates: start: 20160118, end: 20160307
  2. AVASTIN [Suspect]
     Active Substance: BEVACIZUMAB
     Indication: OVARIAN CANCER
     Dosage: STRENGTH: 400 MG
     Route: 042
     Dates: start: 20160118, end: 20160307
  3. AUROBINDO^S RANITIDINE [Concomitant]
     Indication: PREMEDICATION
     Dosage: 2 VIAL SOLUTION FOR INJECTION
     Dates: start: 20160307, end: 20160307
  4. TRIMETON [Concomitant]
     Active Substance: CHLORPHENIRAMINE MALEATE
     Indication: PREMEDICATION
     Dosage: 1 VIAL
     Dates: start: 20160307, end: 20160307
  5. PACLITAXEL ACCORD [Suspect]
     Active Substance: PACLITAXEL
     Indication: OVARIAN CANCER
     Dosage: STRENGTH: 6 MG/ML
     Route: 042
     Dates: start: 20160118, end: 20160307
  6. DESAMETASONE FOSFATO HOSPIRA [Concomitant]
     Indication: PREMEDICATION
     Dosage: 1 VIAL
     Dates: start: 20160307, end: 20160307
  7. SOLU-MEDROL [Concomitant]
     Active Substance: METHYLPREDNISOLONE SODIUM SUCCINATE
     Dosage: 125 MG 1 VIAL IN THE EVENING AND 1 VIAL IN THE NIGHT
     Dates: start: 20160306

REACTIONS (6)
  - Nausea [Recovering/Resolving]
  - Abdominal pain upper [Recovering/Resolving]
  - Blood pressure increased [Recovering/Resolving]
  - Malaise [Recovering/Resolving]
  - Erythema [Recovering/Resolving]
  - Vomiting [Recovering/Resolving]

NARRATIVE: CASE EVENT DATE: 20160307
